FAERS Safety Report 4952290-4 (Version None)
Quarter: 2006Q1

REPORT INFORMATION
  Report Type: 
  Country: None (occurrence: None)
  Receive Date: 20060323
  Receipt Date: 20060303
  Transmission Date: 20060701
  Serious: Yes (Death, Hospitalization)
  Sender: FDA-Public Use
  Company Number: JP-AVENTIS-200610717JP

PATIENT
  Age: 62 Year
  Sex: Male
  Weight: 80 kg

DRUGS (10)
  1. AMARYL [Suspect]
     Route: 048
     Dates: start: 20040928, end: 20041124
  2. AMARYL [Suspect]
     Route: 048
     Dates: start: 20041125, end: 20060301
  3. BASEN [Concomitant]
     Dates: start: 20051229, end: 20060301
  4. ASPARA [Concomitant]
  5. URSO [Concomitant]
  6. TORSEMIDE [Concomitant]
  7. BUFFERIN [Concomitant]
  8. DIGOXIN [Concomitant]
  9. ALDACTONE [Concomitant]
  10. NU-LOTAN [Concomitant]

REACTIONS (1)
  - HYPOGLYCAEMIC COMA [None]
